FAERS Safety Report 21033035 (Version 1)
Quarter: 2022Q2

REPORT INFORMATION
  Report Type: Spontaneous
  Country: US (occurrence: None)
  Receive Date: 20220630
  Receipt Date: 20220630
  Transmission Date: 20220721
  Serious: Yes (Other)
  Sender: FDA-Public Use
  Company Number: None

PATIENT
  Age: 68 Year
  Sex: Male
  Weight: 101.25 kg

DRUGS (6)
  1. PAXLOVID [Suspect]
     Active Substance: NIRMATRELVIR\RITONAVIR
     Indication: COVID-19
     Dosage: FREQUENCY : EVERY 12 HOURS;?
     Route: 048
     Dates: start: 20220416, end: 20220420
  2. PREDNISONE [Concomitant]
     Active Substance: PREDNISONE
  3. METHOTREXATE [Concomitant]
     Active Substance: METHOTREXATE
  4. FOLATE SODIUM [Concomitant]
     Active Substance: FOLATE SODIUM
  5. TMP/SMX DS [Concomitant]
  6. METOPROLOL [Concomitant]

REACTIONS (5)
  - COVID-19 [None]
  - Fatigue [None]
  - Cough [None]
  - Dyspnoea [None]
  - Myalgia [None]

NARRATIVE: CASE EVENT DATE: 20220416
